FAERS Safety Report 9780496 (Version 3)
Quarter: 2014Q1

REPORT INFORMATION
  Report Type: Report from Study
  Country: DE (occurrence: DE)
  Receive Date: 20131224
  Receipt Date: 20140207
  Transmission Date: 20141002
  Serious: Yes (Hospitalization, Other)
  Sender: FDA-Public Use
  Company Number: DE-ROCHE-1322217

PATIENT
  Age: 56 Year
  Sex: Female

DRUGS (8)
  1. RITUXIMAB [Suspect]
     Indication: RHEUMATOID ARTHRITIS
     Dosage: ON 26/FEB/2013, SHE RECEIVED LAST RITUXIMAB (500 MG)
     Route: 065
     Dates: start: 20130226
  2. LEFLUNOMID [Suspect]
     Indication: RHEUMATOID ARTHRITIS
     Route: 065
     Dates: start: 200302
  3. PREDNISOLON [Concomitant]
     Route: 065
  4. TRANSTEC [Concomitant]
     Route: 050
     Dates: end: 201309
  5. DICLAC [Concomitant]
     Route: 065
  6. PANTOZOL (GERMANY) [Concomitant]
  7. NOVAMINE [Concomitant]
  8. ENALAPRIL [Concomitant]
     Route: 065

REACTIONS (5)
  - Postoperative respiratory failure [Recovered/Resolved]
  - Postoperative respiratory distress [Recovered/Resolved]
  - Infectious pleural effusion [Recovered/Resolved]
  - Fistula [Recovered/Resolved]
  - Squamous cell carcinoma [Recovered/Resolved]
